FAERS Safety Report 4324866-9 (Version None)
Quarter: 2004Q1

REPORT INFORMATION
  Report Type: 
  Country: None (occurrence: None)
  Receive Date: 20040323
  Receipt Date: 20031113
  Transmission Date: 20041129
  Serious: No
  Sender: FDA-Public Use
  Company Number: M03-341-085

PATIENT
  Age: 67 Year
  Sex: Female

DRUGS (11)
  1. VELCADE [Suspect]
     Indication: MULTIPLE MYELOMA
     Dosage: 1.3 MG/M2 BIW: INTRAVENOUS BOLUS
     Route: 040
     Dates: start: 20030812, end: 20030821
  2. COREG (NADOLOL) [Concomitant]
  3. DURAGESIC (FANTANYL) [Concomitant]
  4. FUROSEMIDE [Concomitant]
  5. HYDRALAZINE HCL [Concomitant]
  6. INSULIN [Concomitant]
  7. LEVAQUIN [Concomitant]
  8. LIPITOR [Concomitant]
  9. NEUPOGEN [Concomitant]
  10. PROCRIT (ERYTHROPOIETIN) [Concomitant]
  11. VASOTEC [Concomitant]

REACTIONS (2)
  - HERPES ZOSTER [None]
  - PAIN [None]
